FAERS Safety Report 8607172 (Version 2)
Quarter: 2013Q3

REPORT INFORMATION
  Report Type: Spontaneous
  Country: US (occurrence: US)
  Receive Date: 20120611
  Receipt Date: 20130910
  Transmission Date: 20140515
  Serious: Yes (Disabling, Other)
  Sender: FDA-Public Use
  Company Number: US-ASTRAZENECA-2012SE34574

PATIENT
  Age: 414 Month
  Sex: Male

DRUGS (9)
  1. NEXIUM [Suspect]
     Indication: GASTROOESOPHAGEAL REFLUX DISEASE
     Dosage: 40 MG THEN 80 MG
     Route: 048
     Dates: start: 2004, end: 2011
  2. NEXIUM [Suspect]
     Indication: GASTROOESOPHAGEAL REFLUX DISEASE
     Route: 048
     Dates: start: 20100115
  3. PEPCID [Suspect]
     Route: 065
  4. RANITIDINE [Suspect]
     Route: 065
  5. ACIPHEX [Suspect]
     Indication: GASTROOESOPHAGEAL REFLUX DISEASE
     Route: 065
  6. ZEGERID [Suspect]
     Indication: GASTROOESOPHAGEAL REFLUX DISEASE
     Route: 065
  7. ZEGERID [Suspect]
     Indication: GASTROOESOPHAGEAL REFLUX DISEASE
     Route: 065
     Dates: start: 20081122
  8. PROTONIX [Concomitant]
     Indication: GASTROOESOPHAGEAL REFLUX DISEASE
  9. AMBIEN [Concomitant]
     Indication: SLEEP DISORDER

REACTIONS (20)
  - Spinal fracture [Unknown]
  - Back pain [Unknown]
  - Neck pain [Unknown]
  - Cervical radiculopathy [Unknown]
  - Lumbar radiculopathy [Unknown]
  - Osteoporosis [Unknown]
  - Bone disorder [Unknown]
  - Rib fracture [Unknown]
  - Anxiety [Unknown]
  - Calcium deficiency [Unknown]
  - Arthritis [Unknown]
  - Vitamin D deficiency [Unknown]
  - Spondyloarthropathy [Unknown]
  - Intervertebral disc degeneration [Unknown]
  - Spinal osteoarthritis [Unknown]
  - Intervertebral disc protrusion [Unknown]
  - Polyarthritis [Unknown]
  - Depression [Unknown]
  - Rash [Unknown]
  - Gastrooesophageal reflux disease [Unknown]
